FAERS Safety Report 20494111 (Version 1)
Quarter: 2022Q1

REPORT INFORMATION
  Report Type: Spontaneous
  Country: US (occurrence: None)
  Receive Date: 20220221
  Receipt Date: 20220221
  Transmission Date: 20220423
  Serious: Yes (Death)
  Sender: FDA-Public Use
  Company Number: US-ROCHE-3024083

PATIENT
  Age: 64 Year
  Sex: Female
  Weight: 133 kg

DRUGS (1)
  1. TOCILIZUMAB [Suspect]
     Active Substance: TOCILIZUMAB
     Indication: COVID-19
     Route: 065
     Dates: start: 20220114, end: 20220114

REACTIONS (6)
  - Death [Fatal]
  - Dyspnoea [Fatal]
  - Respiratory distress [Fatal]
  - Renal failure [Fatal]
  - Respiratory arrest [Fatal]
  - Lung disorder [Fatal]

NARRATIVE: CASE EVENT DATE: 20220129
